FAERS Safety Report 19510844 (Version 1)
Quarter: 2021Q3

REPORT INFORMATION
  Report Type: Spontaneous
  Country: US (occurrence: US)
  Receive Date: 20210709
  Receipt Date: 20210709
  Transmission Date: 20211014
  Serious: Yes (Other)
  Sender: FDA-Public Use
  Company Number: None

PATIENT
  Age: 30 Year
  Sex: Male
  Weight: 90 kg

DRUGS (1)
  1. DEXTROAMPHETAMINE SULFATE 10 MG MALLINCKRODT [Suspect]
     Active Substance: DEXTROAMPHETAMINE SULFATE
     Indication: ATTENTION DEFICIT HYPERACTIVITY DISORDER
     Dosage: ?          QUANTITY:1 TABLET(S);?
     Route: 048
     Dates: start: 20210601, end: 20210701

REACTIONS (7)
  - Product substitution issue [None]
  - Anxiety [None]
  - Feeling jittery [None]
  - Product measured potency issue [None]
  - Product solubility abnormal [None]
  - Headache [None]
  - Therapeutic product effect decreased [None]

NARRATIVE: CASE EVENT DATE: 20210612
